FAERS Safety Report 7619704-2 (Version None)
Quarter: 2011Q3

REPORT INFORMATION
  Report Type: 
  Country: None (occurrence: None)
  Receive Date: 20110719
  Receipt Date: 20110706
  Transmission Date: 20111222
  Serious: Yes (Other)
  Sender: FDA-Public Use
  Company Number: US-CELGENEUS-163-21880-10123131

PATIENT
  Sex: Female

DRUGS (6)
  1. PREDNISONE [Concomitant]
     Route: 065
  2. ACETAMINOPHEN [Concomitant]
     Route: 065
  3. REVLIMID [Suspect]
     Indication: MULTIPLE MYELOMA
     Dosage: 10 MILLIGRAM
     Route: 048
     Dates: start: 20100413
  4. HYDROCODONE [Concomitant]
     Route: 065
  5. SYNTHROID [Concomitant]
     Route: 065
  6. VITAMIN D [Concomitant]
     Route: 065

REACTIONS (6)
  - SPINAL FRACTURE [None]
  - DIARRHOEA [None]
  - FRACTURED SACRUM [None]
  - PLATELET COUNT DECREASED [None]
  - RIB FRACTURE [None]
  - OSTEOPOROSIS [None]
